FAERS Safety Report 9477058 (Version 2)
Quarter: 2013Q3

REPORT INFORMATION
  Report Type: Spontaneous
  Country: PK (occurrence: PK)
  Receive Date: 20130826
  Receipt Date: 20130827
  Transmission Date: 20140515
  Serious: Yes (Death)
  Sender: FDA-Public Use
  Company Number: PHHY2013PK092358

PATIENT
  Age: 62 Year
  Sex: Female

DRUGS (2)
  1. ACLASTA [Suspect]
     Indication: OSTEOPOROSIS
     Dosage: UNK UKN, UNK
     Route: 042
     Dates: start: 20120802
  2. CALCIUM [Concomitant]
     Dosage: UNK, QD
     Route: 048
     Dates: start: 20120728

REACTIONS (3)
  - Death [Fatal]
  - Abdominal distension [Unknown]
  - Pain [Unknown]
